FAERS Safety Report 19395930 (Version 4)
Quarter: 2022Q3

REPORT INFORMATION
  Report Type: Report from Study
  Country: ES (occurrence: ES)
  Receive Date: 20210609
  Receipt Date: 20220913
  Transmission Date: 20221026
  Serious: Yes (Hospitalization)
  Sender: FDA-Public Use
  Company Number: ES-TAKEDA-2021TUS035902

PATIENT
  Age: 23 Month
  Sex: Male

DRUGS (23)
  1. TEDUGLUTIDE [Suspect]
     Active Substance: TEDUGLUTIDE
     Indication: Short-bowel syndrome
     Dosage: 0.04 MILLIGRAM/KILOGRAM, QD
     Route: 042
     Dates: start: 20201119, end: 20210729
  2. TEDUGLUTIDE [Suspect]
     Active Substance: TEDUGLUTIDE
     Indication: Short-bowel syndrome
     Dosage: 0.04 MILLIGRAM/KILOGRAM, QD
     Route: 042
     Dates: start: 20201119, end: 20210729
  3. TEDUGLUTIDE [Suspect]
     Active Substance: TEDUGLUTIDE
     Indication: Short-bowel syndrome
     Dosage: 0.04 MILLIGRAM/KILOGRAM, QD
     Route: 042
     Dates: start: 20201119, end: 20210729
  4. TEDUGLUTIDE [Suspect]
     Active Substance: TEDUGLUTIDE
     Indication: Short-bowel syndrome
     Dosage: 0.04 MILLIGRAM/KILOGRAM, QD
     Route: 042
     Dates: start: 20201119, end: 20210729
  5. MORPHINE [Concomitant]
     Active Substance: MORPHINE
     Indication: Pain
     Dosage: 0.4 MILLIGRAM, TID
     Route: 048
     Dates: start: 20201217, end: 20210222
  6. CHLORPROMAZINE [Concomitant]
     Active Substance: CHLORPROMAZINE
     Indication: Palliative care
     Dosage: 8 MILLIGRAM, TID
     Route: 048
  7. VITAMIN K [Concomitant]
     Active Substance: PHYTONADIONE
     Indication: Product used for unknown indication
     Dosage: 2.5 MILLIGRAM, QD
     Route: 042
     Dates: end: 20210215
  8. VITAMIN K [Concomitant]
     Active Substance: PHYTONADIONE
     Dosage: 5 MILLIGRAM, QD
     Route: 042
     Dates: start: 20210215
  9. OMEPRAZOLE [Concomitant]
     Active Substance: OMEPRAZOLE
     Indication: Gastric disorder
     Dosage: 6 MILLIGRAM, QD
     Route: 048
  10. Salvacolina [Concomitant]
     Indication: Diarrhoea
     Dosage: 0.2 MILLIGRAM, TID
     Route: 048
     Dates: start: 20201217, end: 20210703
  11. URSODIOL [Concomitant]
     Active Substance: URSODIOL
     Indication: Liver disorder
     Dosage: 30 MILLIGRAM, TID
     Route: 047
     Dates: end: 20210414
  12. URSODIOL [Concomitant]
     Active Substance: URSODIOL
     Dosage: 62.5 MILLIGRAM, TID
     Route: 048
     Dates: start: 20210414
  13. LEVOTHYROXINE [Concomitant]
     Active Substance: LEVOTHYROXINE
     Indication: Hypothyroidism
     Dosage: 62.5 MICROGRAM, QD
     Route: 048
     Dates: end: 20211205
  14. LEVOTHYROXINE [Concomitant]
     Active Substance: LEVOTHYROXINE
     Dosage: 75 MICROGRAM, QD
     Route: 048
     Dates: start: 20211205
  15. OMEPRAZOLE [Concomitant]
     Active Substance: OMEPRAZOLE
     Indication: Gastric disorder
     Dosage: 6 MILLIGRAM, QD
     Route: 048
     Dates: end: 20210222
  16. FERROGLYCINE SULFATE [Concomitant]
     Active Substance: FERROGLYCINE SULFATE
     Indication: Iron deficiency
     Dosage: 1.4 MILLILITER, QD
     Route: 048
     Dates: start: 20210215, end: 20210414
  17. FERROGLYCINE SULFATE [Concomitant]
     Active Substance: FERROGLYCINE SULFATE
     Indication: Iron deficiency anaemia
     Dosage: 60 MILLIGRAM, QD
     Route: 048
     Dates: start: 20220404
  18. Hidropolivit [Concomitant]
     Indication: Vitamin A deficiency
     Dosage: 18 GTT DROPS, QD
     Route: 048
     Dates: start: 20210215, end: 20210703
  19. COLIRCUSI GENTAMICINA [Concomitant]
     Indication: Central venous catheterisation
     Dosage: 2 GTT DROPS, QD
     Route: 047
     Dates: start: 20210215, end: 20210225
  20. DOMPERIDONE [Concomitant]
     Active Substance: DOMPERIDONE
     Indication: Nausea
     Dosage: 2 MILLIGRAM, TID
     Route: 048
     Dates: start: 20210825
  21. DOMPERIDONE [Concomitant]
     Active Substance: DOMPERIDONE
     Indication: Vomiting
  22. BEMIPARIN SODIUM [Concomitant]
     Active Substance: BEMIPARIN SODIUM
     Indication: Thrombosis
     Dosage: 2000 INTERNATIONAL UNIT
     Route: 058
     Dates: start: 20211205
  23. BEMIPARIN SODIUM [Concomitant]
     Active Substance: BEMIPARIN SODIUM
     Dosage: 1900 INTERNATIONAL UNIT
     Route: 058
     Dates: start: 20210717, end: 20211205

REACTIONS (3)
  - Metabolic acidosis [Recovered/Resolved]
  - Diarrhoea [Recovered/Resolved]
  - Device breakage [Recovered/Resolved]

NARRATIVE: CASE EVENT DATE: 20201202
